FAERS Safety Report 6846720-0 (Version None)
Quarter: 2010Q3

REPORT INFORMATION
  Report Type: 
  Country: None (occurrence: None)
  Receive Date: 20100713
  Receipt Date: 20100702
  Transmission Date: 20110219
  Serious: Yes (Other)
  Sender: FDA-Public Use
  Company Number: 2010JP003875

PATIENT
  Age: 50 Year
  Sex: Female

DRUGS (7)
  1. PROGRAF [Suspect]
     Indication: RENAL TRANSPLANT
     Dosage: ORAL
     Route: 048
  2. MYCOPHENOLATE MOFETIL [Concomitant]
  3. MYCOPHENOLATE MOFETIL [Suspect]
  4. METHYLPREDISOLONE (METHYLPREDNISOLONE) [Concomitant]
  5. INSULIN (INSULIN) [Concomitant]
  6. BASILIXMAB (BASILIXIMAB) [Concomitant]
  7. BASILIXMAB (BASILIXIMAB) [Concomitant]

REACTIONS (1)
  - CYTOMEGALOVIRUS TEST POSITIVE [None]
